FAERS Safety Report 7219992-0 (Version None)
Quarter: 2011Q1

REPORT INFORMATION
  Report Type: 
  Country: None (occurrence: None)
  Receive Date: 20110111
  Receipt Date: 20110106
  Transmission Date: 20110831
  Serious: Yes (Hospitalization)
  Sender: FDA-Public Use
  Company Number: JP-PFIZER INC-2010179604

PATIENT
  Age: 48 Year
  Sex: Female
  Weight: 51.5 kg

DRUGS (18)
  1. HYPEN [Suspect]
     Dosage: 200 MG, 1X/DAY
     Dates: start: 20101228
  2. CP-690,550 [Suspect]
     Indication: RHEUMATOID ARTHRITIS
     Dosage: 5 MG, 2X/DAY
     Route: 048
     Dates: start: 20091007, end: 20100322
  3. CP-690,550 [Suspect]
     Dosage: 10 MG, 2X/DAY
     Route: 048
     Dates: start: 20100323, end: 20101129
  4. MEDROL [Suspect]
     Indication: RHEUMATOID ARTHRITIS
     Dosage: 3 MG/DAY
     Route: 048
     Dates: start: 20090602, end: 20101220
  5. MICOMBI [Concomitant]
     Indication: HYPERTENSION
     Dosage: 1 TAB, 1X/DAY
     Route: 048
     Dates: start: 20101006, end: 20101220
  6. AMLODIPINE [Concomitant]
     Dosage: 5 MG, 2X/DAY
     Dates: start: 20101228
  7. MICOMBI [Concomitant]
     Dosage: 1 TAB, 1X/DAY
     Dates: start: 20101228
  8. HYPEN [Suspect]
     Dosage: 200 MG, 1X/DAY
     Route: 048
     Dates: start: 20100908, end: 20101220
  9. PROTECADIN [Concomitant]
     Dosage: 10 MG, 2X/DAY
     Dates: start: 20101228
  10. AMLODIPINE [Concomitant]
     Indication: HYPERTENSION
     Dosage: 5 MG, 2X/DAY
     Route: 048
     Dates: start: 20101201, end: 20101220
  11. SELTOUCH [Concomitant]
     Indication: RHEUMATOID ARTHRITIS
     Dosage: UNK
     Dates: start: 20081125
  12. MEDROL [Suspect]
     Dosage: 3MG /DAY
     Dates: start: 20101228
  13. PROTECADIN [Concomitant]
     Indication: GASTRITIS PROPHYLAXIS
     Dosage: 10 MG, 2X/DAY
     Route: 048
     Dates: start: 20060417, end: 20101220
  14. CYTOTEC [Concomitant]
     Dosage: 100 UG, 2X/DAY
     Dates: start: 20101228
  15. CP-690,550 [Suspect]
     Dosage: 5 MG, 2X/DAY
     Route: 048
     Dates: start: 20101130, end: 20101220
  16. CYTOTEC [Concomitant]
     Indication: GASTRITIS PROPHYLAXIS
     Dosage: 100 UG, 2X/DAY
     Route: 048
     Dates: start: 20090518, end: 20101220
  17. CRESTOR [Concomitant]
     Indication: HYPERLIPIDAEMIA
     Dosage: 5 MG, 1X/DAY
     Route: 048
     Dates: start: 20101201, end: 20101220
  18. CRESTOR [Concomitant]
     Dosage: 5 MG, 1X/DAY
     Dates: start: 20101228

REACTIONS (1)
  - ILEUS [None]
